FAERS Safety Report 6972857-1 (Version None)
Quarter: 2010Q3

REPORT INFORMATION
  Report Type: 
  Country: None (occurrence: None)
  Receive Date: 20100909
  Receipt Date: 20100831
  Transmission Date: 20110219
  Serious: Yes (Other)
  Sender: FDA-Public Use
  Company Number: PHHY2008DE30072

PATIENT
  Sex: Female

DRUGS (4)
  1. RASILEZ [Suspect]
     Dosage: 300 MG, UNK
     Dates: start: 20081006, end: 20081101
  2. METHYLDOPA [Concomitant]
     Indication: HYPERTENSION
     Dosage: 1 DF, QD
     Route: 048
     Dates: start: 20081121, end: 20090316
  3. METHYLDOPA [Concomitant]
     Dosage: 2 DF, QD
     Route: 048
     Dates: start: 20090317, end: 20090716
  4. ISOPTIN [Concomitant]
     Indication: HYPERTENSION
     Dosage: 2 DF, UNK
     Route: 048
     Dates: start: 20080418, end: 20090716

REACTIONS (4)
  - BRONCHITIS [None]
  - CAESAREAN SECTION [None]
  - DRUG EXPOSURE DURING PREGNANCY [None]
  - NORMAL NEWBORN [None]
